FAERS Safety Report 6109066-4 (Version None)
Quarter: 2009Q1

REPORT INFORMATION
  Report Type: 
  Country: None (occurrence: None)
  Receive Date: 20090310
  Receipt Date: 20090227
  Transmission Date: 20090719
  Serious: Yes (Other)
  Sender: FDA-Public Use
  Company Number: US-ELI_LILLY_AND_COMPANY-US200903000285

PATIENT
  Age: 62 Year
  Sex: Female

DRUGS (1)
  1. EVISTA [Suspect]
     Dosage: UNK, UNKNOWN
     Route: 065
     Dates: start: 20070101

REACTIONS (5)
  - ACROMEGALY [None]
  - BLOOD GROWTH HORMONE ABNORMAL [None]
  - DRUG INEFFECTIVE [None]
  - HIP ARTHROPLASTY [None]
  - PITUITARY TUMOUR [None]
